FAERS Safety Report 14924409 (Version 1)
Quarter: 2018Q2

REPORT INFORMATION
  Report Type: Report from Study
  Country: DE (occurrence: DE)
  Receive Date: 20180522
  Receipt Date: 20180522
  Transmission Date: 20180711
  Serious: Yes (Other)
  Sender: FDA-Public Use
  Company Number: DE-GLAXOSMITHKLINE-DE2018085936

PATIENT
  Age: 18 Year
  Sex: Female

DRUGS (3)
  1. DICLOFENAC [Suspect]
     Active Substance: DICLOFENAC
     Indication: JUVENILE IDIOPATHIC ARTHRITIS
     Dosage: 50 MG, QD
     Route: 065
     Dates: start: 20140502, end: 20171013
  2. TOCILIZUMAB. [Suspect]
     Active Substance: TOCILIZUMAB
     Indication: JUVENILE IDIOPATHIC ARTHRITIS
     Dosage: 162 MG, UNK
     Route: 042
     Dates: start: 20101103
  3. CYANOCOBALAMIN + FOLIC ACID [Suspect]
     Active Substance: CYANOCOBALAMIN\FOLIC ACID
     Indication: JUVENILE IDIOPATHIC ARTHRITIS
     Dosage: UNK
     Route: 065

REACTIONS (1)
  - Cytopenia [Recovering/Resolving]

NARRATIVE: CASE EVENT DATE: 20170101
